FAERS Safety Report 6493536-3 (Version None)
Quarter: 2009Q4

REPORT INFORMATION
  Report Type: 
  Country: None (occurrence: None)
  Receive Date: 20091214
  Receipt Date: 20091204
  Transmission Date: 20100525
  Serious: Yes (Other)
  Sender: FDA-Public Use
  Company Number: GB-PFIZER INC-2008037409

PATIENT
  Age: 37 Year
  Sex: Female

DRUGS (6)
  1. CHAMPIX [Suspect]
     Indication: SMOKING CESSATION THERAPY
     Route: 048
     Dates: start: 20080214, end: 20080331
  2. BISACODYL [Concomitant]
  3. CODEINE PHOSPHATE [Concomitant]
  4. FLUOXETINE [Concomitant]
  5. PARACETAMOL [Concomitant]
  6. ALBUTEROL [Concomitant]

REACTIONS (1)
  - DEPRESSION [None]
